FAERS Safety Report 5450249-4 (Version None)
Quarter: 2007Q3

REPORT INFORMATION
  Report Type: 
  Country: None (occurrence: None)
  Receive Date: 20070912
  Receipt Date: 20070910
  Transmission Date: 20080115
  Serious: No
  Sender: FDA-Public Use
  Company Number: DE-PFIZER INC-2007069308

PATIENT
  Sex: Male

DRUGS (10)
  1. DETRUSITOL LA [Suspect]
     Dates: start: 20061201, end: 20070828
  2. AMIODARONE HCL [Concomitant]
     Route: 048
  3. BISOPROLOL [Concomitant]
     Route: 048
  4. DIGIMERCK [Concomitant]
     Route: 048
  5. MARCUMAR [Concomitant]
     Route: 048
  6. RAMIPRIL [Concomitant]
     Route: 048
  7. REQUIP [Concomitant]
     Route: 048
     Dates: start: 20060101
  8. RESTEX [Concomitant]
     Route: 048
     Dates: start: 20060101
  9. SIFROL [Concomitant]
     Route: 048
     Dates: start: 20060101
  10. SPIRO-D-TABLINEN [Concomitant]
     Route: 048

REACTIONS (4)
  - DRY MOUTH [None]
  - DYSGEUSIA [None]
  - ORAL DISCOMFORT [None]
  - TOOTH MALFORMATION [None]
